FAERS Safety Report 6584787-8 (Version None)
Quarter: 2010Q1

REPORT INFORMATION
  Report Type: 
  Country: None (occurrence: None)
  Receive Date: 20100204
  Receipt Date: 20100122
  Transmission Date: 20100710
  Serious: Yes (Other)
  Sender: FDA-Public Use
  Company Number: DSU-2010-00262

PATIENT
  Sex: Male

DRUGS (7)
  1. BENICAR [Suspect]
     Indication: HYPERTENSION
     Dosage: 20 MG (20 MG, 1/2 40MG QD), PER ORAL
     Route: 048
     Dates: end: 20100108
  2. ACTOS (PIOGLITAZONE) (45 MILLIGRAM, TABLET) (PIOGLITAZONE) [Concomitant]
  3. AMLODIPINE (AMLODIPINE) (5 MILLIGRAM) (AMLODIPINE) [Concomitant]
  4. DOXAZOSIN (DOXAZOSIN) (DOXAZOSIN) [Concomitant]
  5. GLIMEPIRIDE (GLIMEPIRIDE) (4 MILLIGRAM, TABLET) (GLIMEPIRIDE) [Concomitant]
  6. NORMODYNE (LABETALOL HYDROCHLORIDE) (200 MILLIGRAM) (LABETALOL HYDROCH [Concomitant]
  7. LANTUS (INSULIN GLARGINE) (INSULIN GLARGINE) [Concomitant]

REACTIONS (3)
  - ASCITES [None]
  - BLOOD POTASSIUM INCREASED [None]
  - RENAL IMPAIRMENT [None]
